FAERS Safety Report 9886890 (Version 1)
Quarter: 2014Q1

REPORT INFORMATION
  Report Type: Report from Study
  Country: BR (occurrence: BR)
  Receive Date: 20140210
  Receipt Date: 20140210
  Transmission Date: 20141002
  Serious: Yes (Other)
  Sender: FDA-Public Use
  Company Number: BR-US-EMD SERONO, INC.-7266932

PATIENT
  Sex: Male

DRUGS (3)
  1. REBIF [Suspect]
     Indication: MULTIPLE SCLEROSIS
     Dates: start: 20130104
  2. IBUPROFEN [Suspect]
     Indication: PYREXIA
  3. IBUPROFEN [Suspect]
     Indication: TREMOR

REACTIONS (4)
  - Colitis ulcerative [Unknown]
  - Tremor [Unknown]
  - Pyrexia [Unknown]
  - Depressed mood [Recovering/Resolving]
